FAERS Safety Report 9670057 (Version 2)
Quarter: 2014Q1

REPORT INFORMATION
  Report Type: Spontaneous
  Country: US (occurrence: US)
  Receive Date: 20131105
  Receipt Date: 20140121
  Transmission Date: 20141002
  Serious: Yes (Other)
  Sender: FDA-Public Use
  Company Number: US-TEVA-442538USA

PATIENT
  Sex: Female

DRUGS (1)
  1. NEFAZODONE [Suspect]
     Indication: ANXIETY
     Route: 048

REACTIONS (8)
  - Drug withdrawal syndrome [Unknown]
  - Anxiety [Unknown]
  - Nightmare [Unknown]
  - Muscle spasms [Unknown]
  - Blood potassium decreased [Unknown]
  - Amnesia [Unknown]
  - Wrong technique in drug usage process [Unknown]
  - Abnormal dreams [Unknown]
